FAERS Safety Report 17979144 (Version 17)
Quarter: 2022Q2

REPORT INFORMATION
  Report Type: Report from Study
  Country: US (occurrence: US)
  Receive Date: 20200703
  Receipt Date: 20220607
  Transmission Date: 20220721
  Serious: Yes (Other)
  Sender: FDA-Public Use
  Company Number: US-TAKEDA-2020TUS028891

PATIENT
  Age: 83 Year
  Sex: Female
  Weight: 56 kg

DRUGS (21)
  1. BRIGATINIB [Suspect]
     Active Substance: BRIGATINIB
     Indication: Lung carcinoma cell type unspecified stage IV
     Dosage: UNK
     Route: 048
     Dates: start: 2017
  2. BRIGATINIB [Suspect]
     Active Substance: BRIGATINIB
     Indication: Metastases to bone
     Dosage: 80 MILLIGRAM
     Route: 048
  3. BRIGATINIB [Suspect]
     Active Substance: BRIGATINIB
     Indication: Brain neoplasm malignant
     Dosage: 180 MILLIGRAM, QD
     Route: 065
     Dates: start: 20200608
  4. BRIGATINIB [Suspect]
     Active Substance: BRIGATINIB
     Indication: Brain neoplasm malignant
     Dosage: 90 MILLIGRAM
     Route: 065
  5. BRIGATINIB [Suspect]
     Active Substance: BRIGATINIB
     Dosage: 120 MILLIGRAM, QD
     Route: 065
     Dates: start: 202106
  6. BRIGATINIB [Suspect]
     Active Substance: BRIGATINIB
     Dosage: 150 MILLIGRAM, QD
     Route: 065
  7. BRIGATINIB [Suspect]
     Active Substance: BRIGATINIB
     Dosage: 30 MILLIGRAM
     Route: 065
     Dates: start: 2021
  8. BRIGATINIB [Suspect]
     Active Substance: BRIGATINIB
     Dosage: 180 MILLIGRAM, QD
     Route: 065
     Dates: start: 2021
  9. METFORMIN [Concomitant]
     Active Substance: METFORMIN HYDROCHLORIDE
     Dosage: 500 MILLIGRAM, TID
     Route: 065
  10. LOSARTAN [Concomitant]
     Active Substance: LOSARTAN
     Dosage: UNK
     Route: 065
  11. JARDIANCE [Concomitant]
     Active Substance: EMPAGLIFLOZIN
     Dosage: UNK
     Route: 065
  12. VITAMIN D3 [Concomitant]
     Active Substance: CHOLECALCIFEROL
     Dosage: UNK
     Route: 065
  13. VITAMIN B12 [Concomitant]
     Active Substance: CYANOCOBALAMIN
     Dosage: UNK
     Route: 065
  14. OXYBUTYNIN [Concomitant]
     Active Substance: OXYBUTYNIN
     Dosage: UNK
     Route: 065
  15. JANUVIA [Concomitant]
     Active Substance: SITAGLIPTIN PHOSPHATE
     Dosage: UNK
     Route: 065
  16. AMLODIPINE [Concomitant]
     Active Substance: AMLODIPINE BESYLATE
     Dosage: UNK
     Route: 065
  17. LATANOPROST [Concomitant]
     Active Substance: LATANOPROST
     Dosage: UNK
     Route: 065
  18. ALENDRONATE [Concomitant]
     Active Substance: ALENDRONATE SODIUM
     Dosage: UNK
     Route: 065
  19. ATORVASTATIN [Concomitant]
     Active Substance: ATORVASTATIN
     Dosage: UNK
  20. DICLOFENAC [Concomitant]
     Active Substance: DICLOFENAC
     Dosage: UNK
  21. UNSPECIFIED INGREDIENT [Concomitant]
     Active Substance: UNSPECIFIED INGREDIENT
     Dosage: UNK
     Route: 065

REACTIONS (26)
  - Lung neoplasm malignant [Unknown]
  - Metastases to central nervous system [Not Recovered/Not Resolved]
  - Paralysis [Unknown]
  - Blindness [Unknown]
  - Herpes zoster [Recovering/Resolving]
  - Dizziness [Not Recovered/Not Resolved]
  - Pain [Unknown]
  - Dyspnoea [Unknown]
  - Nausea [Unknown]
  - Musculoskeletal stiffness [Unknown]
  - Weight fluctuation [Unknown]
  - Decreased appetite [Unknown]
  - Vomiting [Unknown]
  - Malaise [Not Recovered/Not Resolved]
  - Speech disorder [Unknown]
  - Illness [Unknown]
  - Adverse event [Unknown]
  - Amnesia [Not Recovered/Not Resolved]
  - Back disorder [Unknown]
  - Cognitive disorder [Not Recovered/Not Resolved]
  - Confusional state [Unknown]
  - Memory impairment [Unknown]
  - Tremor [Unknown]
  - Discomfort [Unknown]
  - Product dose omission issue [Unknown]
  - Off label use [Unknown]

NARRATIVE: CASE EVENT DATE: 20220316
